FAERS Safety Report 10774671 (Version 1)
Quarter: 2015Q1

REPORT INFORMATION
  Report Type: Spontaneous
  Country: US (occurrence: None)
  Receive Date: 20150206
  Receipt Date: 20150206
  Transmission Date: 20150721
  Serious: No
  Sender: FDA-Public Use
  Company Number: HYP201309-000056

PATIENT
  Age: 15 Year
  Sex: Male

DRUGS (2)
  1. L-ARGININE [Concomitant]
     Active Substance: ARGININE
  2. RAVICTI [Suspect]
     Active Substance: GLYCEROL PHENYLBUTYRATE
     Indication: UREA CYCLE ENZYME DEFICIENCY
     Route: 048
     Dates: start: 20130905, end: 20130923

REACTIONS (2)
  - Somnolence [None]
  - Hypokalaemia [None]

NARRATIVE: CASE EVENT DATE: 20130912
